FAERS Safety Report 5652493-X (Version None)
Quarter: 2008Q1

REPORT INFORMATION
  Report Type: 
  Country: None (occurrence: None)
  Receive Date: 20080306
  Receipt Date: 20080225
  Transmission Date: 20080703
  Serious: Yes (Other)
  Sender: FDA-Public Use
  Company Number: US-JNJFOC-20080206866

PATIENT
  Sex: Female

DRUGS (1)
  1. DURAGESIC-100 [Suspect]
     Indication: PAIN
     Route: 062

REACTIONS (6)
  - APPLICATION SITE ULCER [None]
  - HEAD INJURY [None]
  - HYPERHIDROSIS [None]
  - MALAISE [None]
  - MEMORY IMPAIRMENT [None]
  - PYREXIA [None]
